FAERS Safety Report 7284072-5 (Version None)
Quarter: 2011Q1

REPORT INFORMATION
  Report Type: 
  Country: None (occurrence: None)
  Receive Date: 20110131
  Receipt Date: 20110120
  Transmission Date: 20110831
  Serious: Yes (Death, Other)
  Sender: FDA-Public Use
  Company Number: UTC-004582

PATIENT
  Sex: Female
  Weight: 149 kg

DRUGS (2)
  1. TYVASO [Suspect]
     Indication: PULMONARY ARTERIAL HYPERTENSION
     Dosage: 216 MCG (54 MCG,4 IN 1 D), INHALATION
     Route: 055
     Dates: start: 20101109
  2. REVATIO [Concomitant]

REACTIONS (2)
  - RESPIRATORY DISTRESS [None]
  - HYPOTENSION [None]
